FAERS Safety Report 7017909-5 (Version None)
Quarter: 2010Q3

REPORT INFORMATION
  Report Type: 
  Country: None (occurrence: None)
  Receive Date: 20100928
  Receipt Date: 20100915
  Transmission Date: 20110219
  Serious: Yes (Hospitalization)
  Sender: FDA-Public Use
  Company Number: US-ELI_LILLY_AND_COMPANY-US201009004527

PATIENT
  Sex: Female

DRUGS (7)
  1. CYMBALTA [Suspect]
     Indication: DEPRESSION
     Dosage: 20 MG, DAILY (1/D)
     Dates: end: 20100906
  2. LITHIUM [Concomitant]
  3. CLONAZEPAM [Concomitant]
  4. FEMARA [Concomitant]
  5. TRAZODONE HCL [Concomitant]
  6. SIMVASTATIN [Concomitant]
  7. VALTREX [Concomitant]

REACTIONS (4)
  - BIPOLAR DISORDER [None]
  - DEPRESSION [None]
  - DRUG INEFFECTIVE [None]
  - DYSTONIA [None]
